FAERS Safety Report 9467446 (Version 2)
Quarter: 2013Q3

REPORT INFORMATION
  Report Type: Spontaneous
  Country: PA (occurrence: PA)
  Receive Date: 20130821
  Receipt Date: 20130821
  Transmission Date: 20140515
  Serious: Yes (Other)
  Sender: FDA-Public Use
  Company Number: PHHY2013PA042941

PATIENT
  Age: 8 Year
  Sex: 0

DRUGS (6)
  1. GLIVEC [Suspect]
     Indication: CHRONIC MYELOID LEUKAEMIA
     Dosage: 340 MG, UNK
  2. GLIVEC [Suspect]
     Dosage: 400 MG, QD
     Dates: start: 20130420, end: 20130508
  3. CEFEPIME [Concomitant]
     Dosage: 1.2 G, Q8H
     Route: 042
  4. CIPROFLOXACINE [Concomitant]
     Dosage: 2 DROPS IN LEFT EAR
  5. TRAMADOL [Concomitant]
     Dosage: 24 MG, Q8H
     Route: 042
  6. ALOPURINOL [Concomitant]
     Dosage: 200 MG, BID
     Route: 048

REACTIONS (4)
  - Exophthalmos [Unknown]
  - Chloroma [Unknown]
  - Periorbital oedema [Recovered/Resolved]
  - Face oedema [Unknown]
